FAERS Safety Report 9565239 (Version 3)
Quarter: 2013Q4

REPORT INFORMATION
  Report Type: Spontaneous
  Country: JP (occurrence: JP)
  Receive Date: 20130930
  Receipt Date: 20131031
  Transmission Date: 20140711
  Serious: Yes (Hospitalization, Other)
  Sender: FDA-Public Use
  Company Number: PHHY2013JP108191

PATIENT
  Age: 70 Year
  Sex: Female

DRUGS (2)
  1. TEGRETOL [Suspect]
     Indication: EPILEPSY
     Dosage: 400 MG, DAILY
     Route: 048
     Dates: start: 20130216, end: 20130317
  2. ECARD [Suspect]
     Dosage: 1 DF, DAILY(CANDESARTAN CILEXETIL 4MG / HYDROCHLOROTHIAZIDE 6.25MG)
     Route: 048

REACTIONS (7)
  - Erythema [Recovering/Resolving]
  - Tubulointerstitial nephritis [Recovering/Resolving]
  - Renal impairment [Recovering/Resolving]
  - Drug eruption [Recovering/Resolving]
  - Rash [Recovering/Resolving]
  - Pruritus [Recovering/Resolving]
  - Blood pressure diastolic decreased [Recovering/Resolving]
